FAERS Safety Report 19586769 (Version 4)
Quarter: 2022Q4

REPORT INFORMATION
  Report Type: Spontaneous
  Country: CA (occurrence: CA)
  Receive Date: 20210721
  Receipt Date: 20221219
  Transmission Date: 20230113
  Serious: Yes (Disabling)
  Sender: FDA-Public Use
  Company Number: None

PATIENT
  Age: 17 Year
  Sex: Male
  Weight: 82 kg

DRUGS (25)
  1. FINACEA [Concomitant]
     Active Substance: AZELAIC ACID
     Indication: Acne
     Dosage: 1 APPLICATION AT BEDTIME
     Route: 003
     Dates: start: 20191203
  2. MOMETASONE [Concomitant]
     Active Substance: MOMETASONE
     Indication: Dermatitis atopic
     Dosage: 1 APPLICATION AT BEDTIME (1 DERMATOLOGICAL PREPARATION,1 IN 1 D)
     Route: 003
     Dates: start: 20200616
  3. UPADACITINIB [Suspect]
     Active Substance: UPADACITINIB
     Indication: Dermatitis atopic
     Dosage: UNKNOWN
     Dates: start: 20190618, end: 20191013
  4. UPADACITINIB [Suspect]
     Active Substance: UPADACITINIB
     Indication: Dermatitis atopic
     Dosage: UNKNOWN
     Dates: start: 20190618, end: 20191013
  5. UPADACITINIB [Suspect]
     Active Substance: UPADACITINIB
     Indication: Dermatitis atopic
     Dates: start: 20191014, end: 20210611
  6. UPADACITINIB [Suspect]
     Active Substance: UPADACITINIB
     Indication: Dermatitis atopic
     Dates: start: 20191014, end: 20210611
  7. HYDROCORTISONE [Suspect]
     Active Substance: HYDROCORTISONE
     Indication: Dermatitis atopic
     Dosage: 0.1 % 1 APPLICATION, EVERY 1 DAYS
     Route: 003
     Dates: start: 20200616
  8. IMOVANE [Concomitant]
     Active Substance: ZOPICLONE
     Indication: Pruritus
     Dosage: 1 AS REQUIRED, 5 MG, AS NECESSARY
     Dates: start: 20200128
  9. EUCERIN [Concomitant]
     Active Substance: ENSULIZOLE\EUCERIN\OCTINOXATE\OCTISALATE\TITANIUM DIOXIDE\ZINC OXIDE
     Indication: Dry skin prophylaxis
     Dosage: 2 DERMATOLOGICAL PREPARATION (1 DERMATOLOGICAL PREPARATION, 2 IN 1 D)
     Route: 003
     Dates: start: 2017
  10. EUCERIN [Concomitant]
     Active Substance: ENSULIZOLE\EUCERIN\OCTINOXATE\OCTISALATE\TITANIUM DIOXIDE\ZINC OXIDE
     Indication: Dry skin prophylaxis
     Dates: start: 2017
  11. BUPROPION HYDROCHLORIDE [Concomitant]
     Active Substance: BUPROPION HYDROCHLORIDE
     Indication: Depression
     Dosage: 150 MG
     Dates: start: 20210423
  12. PROTOPIC [Suspect]
     Active Substance: TACROLIMUS
     Indication: Dermatitis atopic
     Dosage: 1 DERMATOLOGICAL PREPARATION?0.1 % 1 APPLICATION
     Route: 003
     Dates: start: 20200616
  13. PROTOPIC [Suspect]
     Active Substance: TACROLIMUS
     Indication: Dermatitis atopic
     Dosage: 1 DERMATOLOGICAL PREPARATION?0.1 % 1 APPLICATION
     Route: 003
     Dates: start: 20200616
  14. PROTOPIC [Suspect]
     Active Substance: TACROLIMUS
     Indication: Dermatitis atopic
     Dosage: 1 DERMATOLOGICAL PREPARATION?0.1 % 1 APPLICATION
     Route: 003
     Dates: start: 20200616
  15. PROTOPIC [Suspect]
     Active Substance: TACROLIMUS
     Indication: Dermatitis atopic
     Dates: start: 20180508, end: 20190512
  16. PROTOPIC [Suspect]
     Active Substance: TACROLIMUS
     Indication: Dermatitis atopic
     Dates: start: 20180508, end: 20190512
  17. PROTOPIC [Suspect]
     Active Substance: TACROLIMUS
     Indication: Dermatitis atopic
     Dates: start: 20180508, end: 20190512
  18. PROTOPIC [Suspect]
     Active Substance: TACROLIMUS
     Indication: Dermatitis atopic
     Dosage: 0.1 % 1 APPLICATION
     Route: 003
     Dates: start: 20190618, end: 20190709
  19. PROTOPIC [Suspect]
     Active Substance: TACROLIMUS
     Indication: Dermatitis atopic
     Dosage: 0.1 % 1 APPLICATION
     Route: 003
     Dates: start: 20190618, end: 20190709
  20. PROTOPIC [Suspect]
     Active Substance: TACROLIMUS
     Indication: Dermatitis atopic
     Dosage: 0.1 % 1 APPLICATION
     Route: 003
     Dates: start: 20190618, end: 20190709
  21. BETAMETHASONE VALERATE [Suspect]
     Active Substance: BETAMETHASONE VALERATE
     Indication: Dermatitis atopic
     Dosage: 0.1 % 1 APPLICATION, 2/DAYS
     Route: 003
     Dates: start: 20210720
  22. UPADACITINIB [Suspect]
     Active Substance: UPADACITINIB
     Indication: Dermatitis atopic
     Dosage: 15 MG,1 IN 1 D
     Route: 048
     Dates: start: 20191007, end: 20210611
  23. BETADERM [Concomitant]
     Active Substance: BETAMETHASONE VALERATE
     Indication: Dermatitis atopic
     Dosage: 1 DERMATOLOGICAL PREPARATION (1 DERMATOLOGICAL PREPARATION,1 IN 1 D)
     Route: 003
     Dates: start: 20191203
  24. CETIRIZINE [Concomitant]
     Active Substance: CETIRIZINE HYDROCHLORIDE
     Indication: Dermatitis atopic
     Dosage: 10 MG
     Dates: start: 20190511
  25. PREDNISOLONE ACETATE [Concomitant]
     Active Substance: PREDNISOLONE ACETATE
     Indication: Cataract
     Dosage: 3 DROP (1 DROP ,3 IN 1 D)
     Dates: start: 20190826

REACTIONS (2)
  - Glaucoma [Not Recovered/Not Resolved]
  - Blindness [Not Recovered/Not Resolved]

NARRATIVE: CASE EVENT DATE: 20210521
